FAERS Safety Report 19462932 (Version 2)
Quarter: 2021Q3

REPORT INFORMATION
  Report Type: Report from Study
  Country: US (occurrence: US)
  Receive Date: 20210625
  Receipt Date: 20210805
  Transmission Date: 20211014
  Serious: No
  Sender: FDA-Public Use
  Company Number: US-ORGANON-O2106USA000746

PATIENT
  Age: 35 Year
  Sex: Female
  Weight: 50.35 kg

DRUGS (1)
  1. IMPLANON [Suspect]
     Active Substance: ETONOGESTREL
     Indication: CONTRACEPTION
     Dosage: 1 IMPLANT (68 MG EVERY 3 YEARS)
     Route: 059
     Dates: start: 20210212, end: 20210326

REACTIONS (1)
  - Implant site pain [Recovered/Resolved]

NARRATIVE: CASE EVENT DATE: 20210326
